FAERS Safety Report 7338736-5 (Version None)
Quarter: 2011Q1

REPORT INFORMATION
  Report Type: 
  Country: None (occurrence: None)
  Receive Date: 20110308
  Receipt Date: 20110228
  Transmission Date: 20110831
  Serious: No
  Sender: FDA-Public Use
  Company Number: B0704032A

PATIENT
  Sex: Female

DRUGS (1)
  1. SORIATANE [Suspect]
     Indication: ACCIDENTAL EXPOSURE
     Route: 048

REACTIONS (2)
  - DRUG EXPOSURE DURING PREGNANCY [None]
  - DRUG ADMINISTRATION ERROR [None]
